FAERS Safety Report 10185313 (Version 1)
Quarter: 2014Q2

REPORT INFORMATION
  Report Type: Spontaneous
  Country: US (occurrence: US)
  Receive Date: 20140521
  Receipt Date: 20140521
  Transmission Date: 20141212
  Serious: No
  Sender: FDA-Public Use
  Company Number: US-PFIZER INC-2014135751

PATIENT
  Age: 14 Year
  Sex: Female

DRUGS (4)
  1. PROTONIX [Suspect]
     Dosage: UNK
  2. PANTOPRAZOLE [Suspect]
     Dosage: UNK
  3. HUMIRA [Suspect]
     Dosage: UNK
  4. EUCREAS [Suspect]
     Dosage: UNK

REACTIONS (3)
  - Alopecia [Unknown]
  - Anaemia [Unknown]
  - Muscle spasms [Unknown]
